FAERS Safety Report 9660333 (Version 3)
Quarter: 2017Q3

REPORT INFORMATION
  Report Type: Spontaneous
  Country: US (occurrence: US)
  Receive Date: 20131031
  Receipt Date: 20170828
  Transmission Date: 20171128
  Serious: Yes (Other)
  Sender: FDA-Public Use
  Company Number: US-NAPPMUNDI-USA-2011-0073693

PATIENT
  Age: 69 Year
  Sex: Male

DRUGS (2)
  1. OXYCONTIN [Suspect]
     Active Substance: OXYCODONE HYDROCHLORIDE
     Indication: PAIN
     Dosage: UNK
     Route: 048
  2. OXYCONTIN [Suspect]
     Active Substance: OXYCODONE HYDROCHLORIDE
     Dosage: UNK
     Route: 048

REACTIONS (15)
  - Bacterial infection [Unknown]
  - Erythema [Unknown]
  - Feeling abnormal [Unknown]
  - Staphylococcal infection [Unknown]
  - Fall [Unknown]
  - Neck surgery [Unknown]
  - Leg amputation [Unknown]
  - Intervertebral disc protrusion [Unknown]
  - Prosthesis user [Unknown]
  - Neck pain [Unknown]
  - Unevaluable event [Unknown]
  - Foot operation [Unknown]
  - Impaired healing [Unknown]
  - Pain in extremity [Unknown]
  - Drug dependence [Recovered/Resolved]

NARRATIVE: CASE EVENT DATE: 201106
